FAERS Safety Report 11864048 (Version 2)
Quarter: 2016Q1

REPORT INFORMATION
  Report Type: Spontaneous
  Country: CL (occurrence: CL)
  Receive Date: 20151223
  Receipt Date: 20160122
  Transmission Date: 20160526
  Serious: Yes (Other)
  Sender: FDA-Public Use
  Company Number: CL-PFIZER INC-2015461425

PATIENT
  Age: 66 Year
  Sex: Male

DRUGS (2)
  1. RAVOTRIL [Concomitant]
     Active Substance: CLONAZEPAM
  2. NORVASC [Suspect]
     Active Substance: AMLODIPINE BESYLATE
     Dosage: UNK
     Dates: start: 1979

REACTIONS (2)
  - Neoplasm malignant [Not Recovered/Not Resolved]
  - Osteoarthritis [Not Recovered/Not Resolved]
